FAERS Safety Report 13789437 (Version 1)
Quarter: 2017Q3

REPORT INFORMATION
  Report Type: Spontaneous
  Country: US (occurrence: US)
  Receive Date: 20170725
  Receipt Date: 20170725
  Transmission Date: 20171127
  Serious: No
  Sender: FDA-Public Use
  Company Number: US-PFIZER INC-2010026562

PATIENT
  Age: 47 Year
  Sex: Female
  Weight: 57 kg

DRUGS (3)
  1. MAGNESIUM [Suspect]
     Active Substance: MAGNESIUM
     Dosage: 200 MG, UNK
     Route: 048
     Dates: start: 20100222, end: 201002
  2. SERTRALINE HCL [Suspect]
     Active Substance: SERTRALINE HYDROCHLORIDE
     Indication: DEPRESSION
     Dosage: 50 MG, UNK
     Route: 048
     Dates: start: 200910, end: 200910
  3. ZOLOFT [Suspect]
     Active Substance: SERTRALINE HYDROCHLORIDE
     Indication: DEPRESSION
     Dosage: 50 MG, DAILY
     Route: 048
     Dates: start: 1992

REACTIONS (9)
  - Irritability [Unknown]
  - Nausea [Unknown]
  - Insomnia [Unknown]
  - Drug ineffective [Unknown]
  - Agitation [Unknown]
  - Feeling abnormal [Unknown]
  - Euphoric mood [Unknown]
  - Dizziness [Unknown]
  - Malaise [Unknown]

NARRATIVE: CASE EVENT DATE: 200910
